FAERS Safety Report 18769114 (Version 1)
Quarter: 2021Q1

REPORT INFORMATION
  Report Type: Report from Study
  Country: CA (occurrence: CA)
  Receive Date: 20210121
  Receipt Date: 20210121
  Transmission Date: 20210419
  Serious: Yes (Hospitalization, Other)
  Sender: FDA-Public Use
  Company Number: CA-TAKEDA-2021TUS003548

PATIENT
  Age: 33 Year
  Sex: Male

DRUGS (3)
  1. SALOFALK [AMINOSALICYLIC ACID] [Concomitant]
     Active Substance: AMINOSALICYLIC ACID
     Dosage: UNK
  2. VEDOLIZUMAB [Suspect]
     Active Substance: VEDOLIZUMAB
     Indication: COLITIS ULCERATIVE
     Dosage: 300 MILLIGRAM
     Route: 042
     Dates: start: 20201204
  3. CORTIMENT [BUDESONIDE] [Concomitant]
     Active Substance: BUDESONIDE
     Dosage: UNK

REACTIONS (1)
  - Colitis ulcerative [Unknown]
